FAERS Safety Report 11925143 (Version 2)
Quarter: 2016Q1

REPORT INFORMATION
  Report Type: Spontaneous
  Country: US (occurrence: US)
  Receive Date: 20160118
  Receipt Date: 20160315
  Transmission Date: 20160526
  Serious: Yes (Other)
  Sender: FDA-Public Use
  Company Number: US-REGCON SOLUTIONS LLC-2015BEX00004

PATIENT
  Sex: Female
  Weight: 73.92 kg

DRUGS (8)
  1. VITAMIN D [Concomitant]
     Active Substance: CHOLECALCIFEROL
     Dosage: 500000 IU, 1X/MONTH
     Dates: start: 2012
  2. LOSARTAN. [Concomitant]
     Active Substance: LOSARTAN
     Dosage: 100 MG, 2X/DAY
  3. HYDROCODONE BITARTRATE AND ACETAMINOPHEN [Concomitant]
     Active Substance: ACETAMINOPHEN\HYDROCODONE BITARTRATE
     Dosage: 1 DOSAGE UNITS, 2X/DAY
     Dates: start: 201408
  4. ALAVERT ALLERGY [Concomitant]
     Active Substance: LORATADINE
     Dosage: 10 MG, AS NEEDED
  5. CARVEDILOL. [Suspect]
     Active Substance: CARVEDILOL
     Indication: AORTIC VALVE STENOSIS
     Dosage: 6.25 MG, 2X/DAY
     Route: 048
     Dates: start: 20150716, end: 20150730
  6. CARVEDILOL. [Suspect]
     Active Substance: CARVEDILOL
     Indication: AORTIC VALVE STENOSIS
     Dosage: 12.5 MG, 2X/DAY
     Route: 048
     Dates: start: 20150731, end: 20150813
  7. CARVEDILOL. [Suspect]
     Active Substance: CARVEDILOL
     Dosage: 6.25 MG, 2X/DAY
     Route: 048
     Dates: start: 20150813
  8. LOPID [Concomitant]
     Active Substance: GEMFIBROZIL
     Dosage: 600 MG, 2X/DAY

REACTIONS (20)
  - Dyspnoea [Recovering/Resolving]
  - Respiratory disorder [Unknown]
  - Flatulence [Recovering/Resolving]
  - Skin hyperpigmentation [Not Recovered/Not Resolved]
  - Haemorrhage [Not Recovered/Not Resolved]
  - Eructation [Unknown]
  - Fatigue [Not Recovered/Not Resolved]
  - Somnolence [Not Recovered/Not Resolved]
  - Anxiety [Recovering/Resolving]
  - Conduction disorder [Unknown]
  - Abdominal distension [Recovering/Resolving]
  - Hunger [Not Recovered/Not Resolved]
  - Bladder prolapse [Not Recovered/Not Resolved]
  - Weight increased [Not Recovered/Not Resolved]
  - Impaired healing [Not Recovered/Not Resolved]
  - Hypertension [Unknown]
  - Urticaria [Recovering/Resolving]
  - Dizziness [Unknown]
  - Hot flush [Unknown]
  - Bradycardia [Unknown]

NARRATIVE: CASE EVENT DATE: 2015
